FAERS Safety Report 7057464-7 (Version None)
Quarter: 2010Q4

REPORT INFORMATION
  Report Type: 
  Country: None (occurrence: None)
  Receive Date: 20101022
  Receipt Date: 20101011
  Transmission Date: 20110411
  Serious: Yes (Other)
  Sender: FDA-Public Use
  Company Number: PHHY2010US34092

PATIENT
  Age: 81 Year
  Sex: Female

DRUGS (2)
  1. TEGRETOL [Suspect]
     Indication: TRIGEMINAL NEURALGIA
     Dosage: UNK,UNK
  2. SYNTHROID [Suspect]
     Indication: THYROID DISORDER
     Dosage: UNK,UNK

REACTIONS (4)
  - BLINDNESS UNILATERAL [None]
  - CHOLELITHIASIS [None]
  - CHOLELITHOTOMY [None]
  - EAR INFECTION [None]
